FAERS Safety Report 24615877 (Version 1)
Quarter: 2024Q4

REPORT INFORMATION
  Report Type: Spontaneous
  Country: US (occurrence: US)
  Receive Date: 20241113
  Receipt Date: 20241113
  Transmission Date: 20250115
  Serious: Yes (Other)
  Sender: JOHNSON AND JOHNSON
  Company Number: US-JNJFOC-20241123758

PATIENT
  Sex: Female

DRUGS (2)
  1. BALVERSA [Suspect]
     Active Substance: ERDAFITINIB
     Indication: Product used for unknown indication
     Route: 065
  2. BALVERSA [Suspect]
     Active Substance: ERDAFITINIB
     Route: 065

REACTIONS (2)
  - Myocardial infarction [Unknown]
  - Mucosal inflammation [Unknown]
